FAERS Safety Report 10021464 (Version 1)
Quarter: 2014Q1

REPORT INFORMATION
  Report Type: Spontaneous
  Country: US (occurrence: US)
  Receive Date: 20140319
  Receipt Date: 20140319
  Transmission Date: 20141002
  Serious: No
  Sender: FDA-Public Use
  Company Number: US-009507513-1403USA008552

PATIENT
  Age: 68 Year
  Sex: Male

DRUGS (1)
  1. LISINOPRIL [Suspect]

REACTIONS (1)
  - Drug hypersensitivity [Unknown]
